FAERS Safety Report 7552755-5 (Version None)
Quarter: 2011Q2

REPORT INFORMATION
  Report Type: 
  Country: None (occurrence: None)
  Receive Date: 20110616
  Receipt Date: 20110606
  Transmission Date: 20111010
  Serious: Yes (Death, Other)
  Sender: FDA-Public Use
  Company Number: BR-GENZYME-CLOF-1000896

PATIENT
  Sex: Female

DRUGS (4)
  1. CLOLAR [Suspect]
     Dosage: UNK UNK, UNK, CYCLE 3
     Route: 065
     Dates: start: 20100304, end: 20100308
  2. CLOLAR [Suspect]
     Indication: ACUTE LYMPHOCYTIC LEUKAEMIA
     Dosage: UNK UNK, UNK, CYCLE 1
     Route: 065
     Dates: start: 20091215, end: 20091219
  3. DIPHENHYDRAMINE HCL [Concomitant]
     Indication: PRODUCT USED FOR UNKNOWN INDICATION
     Dosage: UNK
     Route: 065
  4. CLOLAR [Suspect]
     Dosage: UNK UNK, UNK, CYCLE 2
     Route: 065
     Dates: start: 20091219, end: 20091223

REACTIONS (9)
  - CEREBRAL ARTERY OCCLUSION [None]
  - INTRAVENTRICULAR HAEMORRHAGE [None]
  - PANCYTOPENIA [None]
  - CEREBROVASCULAR ACCIDENT [None]
  - AGITATION [None]
  - LEUKOPENIA [None]
  - INSOMNIA [None]
  - PALMAR-PLANTAR ERYTHRODYSAESTHESIA SYNDROME [None]
  - BONE MARROW FAILURE [None]
